FAERS Safety Report 6278213-6 (Version None)
Quarter: 2009Q3

REPORT INFORMATION
  Report Type: 
  Country: None (occurrence: None)
  Receive Date: 20090722
  Receipt Date: 20090716
  Transmission Date: 20100115
  Serious: Yes (Hospitalization)
  Sender: FDA-Public Use
  Company Number: FR-ASTRAZENECA-2009CG00426

PATIENT
  Age: 55 Year
  Sex: Male

DRUGS (5)
  1. NEXIUM [Suspect]
     Route: 048
  2. MOPRAL [Suspect]
     Route: 065
  3. CRESTOR [Concomitant]
     Route: 048
  4. EZETROL [Concomitant]
     Route: 048
  5. LOPERAMIDE HYDROCHLORIDE [Concomitant]
     Route: 048

REACTIONS (4)
  - HYPOCALCAEMIA [None]
  - HYPOMAGNESAEMIA [None]
  - MYALGIA [None]
  - PARAESTHESIA [None]
